FAERS Safety Report 7786236-0 (Version None)
Quarter: 2011Q3

REPORT INFORMATION
  Report Type: 
  Country: None (occurrence: None)
  Receive Date: 20110929
  Receipt Date: 20110505
  Transmission Date: 20111222
  Serious: No
  Sender: FDA-Public Use
  Company Number: US-BAYER-2011-040599

PATIENT
  Age: 75 Year
  Sex: Male
  Weight: 116 kg

DRUGS (4)
  1. INSULIN [Concomitant]
  2. ALEVE (CAPLET) [Suspect]
     Indication: BACK PAIN
     Dosage: 2 TABLETS TWICE DAILY - 24 COUNT
     Route: 048
     Dates: start: 20110428
  3. UNCODEABLE ^UNCLASSIFIABLE^ [Concomitant]
  4. ALEVE (CAPLET) [Suspect]

REACTIONS (1)
  - OVERDOSE [None]
